FAERS Safety Report 14909970 (Version 6)
Quarter: 2019Q1

REPORT INFORMATION
  Report Type: Spontaneous
  Country: JP (occurrence: JP)
  Receive Date: 20180517
  Receipt Date: 20190102
  Transmission Date: 20190417
  Serious: Yes (Death, Other)
  Sender: FDA-Public Use
  Company Number: JP-PFIZER INC-2018186914

PATIENT
  Age: 55 Year
  Sex: Male
  Weight: 53 kg

DRUGS (17)
  1. BESPONSA [Suspect]
     Active Substance: INOTUZUMAB OZOGAMICIN
     Dosage: 0.5 MG/M2, 1X/DAY
     Route: 041
     Dates: start: 20180511, end: 20180511
  2. BESPONSA [Suspect]
     Active Substance: INOTUZUMAB OZOGAMICIN
     Indication: ACUTE LYMPHOCYTIC LEUKAEMIA RECURRENT
     Dosage: 0.8 MG/M2, 1X/DAY
     Route: 041
     Dates: start: 20180424, end: 20180424
  3. BESPONSA [Suspect]
     Active Substance: INOTUZUMAB OZOGAMICIN
     Dosage: 0.5 MG/M2, 1X/DAY
     Route: 041
     Dates: start: 20180525, end: 20180525
  4. BESPONSA [Suspect]
     Active Substance: INOTUZUMAB OZOGAMICIN
     Dosage: 0.5 MG/M2, 1X/DAY
     Route: 041
     Dates: start: 20180601, end: 20180601
  5. VORICONAZOLE. [Concomitant]
     Active Substance: VORICONAZOLE
     Indication: LUNG ABSCESS
     Dosage: 200 MG, 2X/DAY
     Route: 048
     Dates: start: 20180115, end: 20180618
  6. CALONAL [Concomitant]
     Active Substance: ACETAMINOPHEN
     Indication: TUMOUR ASSOCIATED FEVER
     Dosage: 500 MG, 4X/DAY
     Route: 048
     Dates: start: 20171220, end: 20180618
  7. FEBURIC [Concomitant]
     Active Substance: FEBUXOSTAT
     Indication: PROPHYLAXIS
     Dosage: 60 MG, 1X/DAY
     Route: 048
     Dates: start: 20171220, end: 20180618
  8. BESPONSA [Suspect]
     Active Substance: INOTUZUMAB OZOGAMICIN
     Dosage: 0.5 MG/M2, 1X/DAY
     Route: 041
     Dates: start: 20180501, end: 20180501
  9. BESPONSA [Suspect]
     Active Substance: INOTUZUMAB OZOGAMICIN
     Dosage: 0.8 MG/M2, 1X/DAY
     Route: 041
     Dates: start: 20180518, end: 20180518
  10. MEROPENEM. [Concomitant]
     Active Substance: MEROPENEM
     Dosage: 1 G, 3X/DAY
     Dates: start: 20180604, end: 20180618
  11. TEICOPLANIN [Concomitant]
     Active Substance: TEICOPLANIN
     Dosage: 300 MG, 1X/DAY
     Route: 041
     Dates: start: 20180428, end: 20180618
  12. ACYCLOVIR [ACICLOVIR] [Concomitant]
     Active Substance: ACYCLOVIR
     Indication: PROPHYLAXIS
     Dosage: 200 MG, 1X/DAY
     Route: 048
     Dates: start: 20171220, end: 20180618
  13. OXIFAST [Concomitant]
     Active Substance: OXYCODONE
     Indication: PAIN
     Dosage: 4.8 MG, DAILY
     Route: 041
     Dates: start: 20180116, end: 20180618
  14. TEICOPLANIN [Concomitant]
     Active Substance: TEICOPLANIN
     Indication: LUNG ABSCESS
     Dosage: 200 MG, 2X/DAY
     Route: 041
     Dates: start: 20180413, end: 20180416
  15. TEICOPLANIN [Concomitant]
     Active Substance: TEICOPLANIN
     Dosage: 400 MG, 1X/DAY
     Route: 041
     Dates: start: 20180420, end: 20180426
  16. MEROPENEM. [Concomitant]
     Active Substance: MEROPENEM
     Indication: LUNG ABSCESS
     Dosage: 1 G, 3X/DAY
     Route: 041
     Dates: start: 20180111, end: 20180517
  17. LANSOPRAZOLE. [Concomitant]
     Active Substance: LANSOPRAZOLE
     Indication: GASTRITIS PROPHYLAXIS
     Dosage: 15 MG, 1X/DAY
     Route: 048
     Dates: start: 20171220, end: 20180618

REACTIONS (3)
  - White blood cell count decreased [Recovered/Resolved]
  - Enterocolitis [Recovering/Resolving]
  - Neoplasm progression [Fatal]

NARRATIVE: CASE EVENT DATE: 20180426
